FAERS Safety Report 20719178 (Version 3)
Quarter: 2022Q2

REPORT INFORMATION
  Report Type: Report from Study
  Country: IQ (occurrence: IQ)
  Receive Date: 20220418
  Receipt Date: 20220524
  Transmission Date: 20220720
  Serious: Yes (Other)
  Sender: FDA-Public Use
  Company Number: IQ-BAYER-2022A051149

PATIENT
  Age: 70 Year
  Sex: Male

DRUGS (2)
  1. NEXAVAR [Suspect]
     Active Substance: SORAFENIB
     Dosage: UNK
  2. VITAMINS [Concomitant]
     Active Substance: VITAMINS
     Dosage: UNK

REACTIONS (3)
  - Hypoaesthesia [Not Recovered/Not Resolved]
  - Erectile dysfunction [Not Recovered/Not Resolved]
  - Back pain [None]

NARRATIVE: CASE EVENT DATE: 20220402
